FAERS Safety Report 9276722 (Version 2)
Quarter: 2013Q3

REPORT INFORMATION
  Report Type: Spontaneous
  Country: AU (occurrence: AU)
  Receive Date: 20130507
  Receipt Date: 20130718
  Transmission Date: 20140515
  Serious: Yes (Death, Hospitalization)
  Sender: FDA-Public Use
  Company Number: AU-CELGENEUS-008-C4047-13050664

PATIENT
  Age: 60 Year
  Sex: Male

DRUGS (2)
  1. CC-4047 [Suspect]
     Indication: PLASMA CELL MYELOMA
     Route: 048
     Dates: start: 20130208, end: 20130307
  2. CC-4047 [Suspect]
     Route: 048
     Dates: start: 20130404, end: 20130421

REACTIONS (2)
  - Pneumonia [Fatal]
  - Gastrointestinal disorder [Unknown]
